FAERS Safety Report 13757987 (Version 1)
Quarter: 2017Q3

REPORT INFORMATION
  Report Type: Spontaneous
  Country: US (occurrence: US)
  Receive Date: 20170717
  Receipt Date: 20170717
  Transmission Date: 20171127
  Serious: No
  Sender: FDA-Public Use
  Company Number: US-TEVA-763090ACC

PATIENT
  Age: 16 Year
  Sex: Male
  Weight: 52.16 kg

DRUGS (1)
  1. ESOMEPRAZOLE MAGNESIUM. [Suspect]
     Active Substance: ESOMEPRAZOLE MAGNESIUM
     Indication: ACIDOSIS
     Dosage: 40 MILLIGRAM DAILY;
     Route: 048
     Dates: start: 20170327

REACTIONS (1)
  - Drug ineffective [Unknown]
